FAERS Safety Report 7445266-9 (Version None)
Quarter: 2011Q2

REPORT INFORMATION
  Report Type: 
  Country: None (occurrence: None)
  Receive Date: 20110429
  Receipt Date: 20110405
  Transmission Date: 20111010
  Serious: Yes (Other)
  Sender: FDA-Public Use
  Company Number: US-BAYER-201033659NA

PATIENT
  Age: 37 Year
  Sex: Female
  Weight: 108.84 kg

DRUGS (12)
  1. OCELLA [Suspect]
     Indication: CONTRACEPTION
     Route: 048
  2. NEXIUM [Concomitant]
     Dosage: 40 MG, CONT
     Route: 048
     Dates: start: 20081115
  3. HYDROCODONE BITARTRATE AND ACETAMINOPHEN [Concomitant]
     Dosage: UNK
     Route: 048
     Dates: start: 20081205
  4. METRONIDAZOLE [Concomitant]
     Dosage: UNK
     Route: 048
     Dates: start: 20091119
  5. CELEXA [Concomitant]
     Indication: DEPRESSION
     Dosage: 20 MG, UNK
     Route: 048
  6. SULFACETAMIDE SODIUM [Concomitant]
     Dosage: UNK UNK, TID
     Route: 047
     Dates: start: 20061019
  7. METHLYPREDNISONE [Concomitant]
     Dosage: 4 MG, UNK
     Route: 048
     Dates: start: 20080711
  8. MEDROL [Concomitant]
     Indication: INFLAMMATION
     Dosage: 4 MG, UNK
     Route: 048
  9. YAZ [Suspect]
     Indication: CONTRACEPTION
     Route: 065
     Dates: start: 20080101, end: 20090501
  10. YASMIN [Suspect]
     Indication: CONTRACEPTION
     Route: 065
     Dates: start: 20080101, end: 20090501
  11. CITALOPRAM [Concomitant]
     Dosage: 10 MG, CONT
     Route: 048
     Dates: start: 20080811
  12. HYDROCODONE BITARTRATE AND ACETAMINOPHEN [Concomitant]
     Indication: PAIN
     Dosage: 5 MG, UNK
     Route: 048

REACTIONS (2)
  - CHOLECYSTECTOMY [None]
  - CHOLELITHIASIS [None]
